FAERS Safety Report 9992880 (Version 1)
Quarter: 2014Q1

REPORT INFORMATION
  Report Type: Report from Study
  Country: US (occurrence: US)
  Receive Date: 20140310
  Receipt Date: 20140310
  Transmission Date: 20141002
  Serious: No
  Sender: FDA-Public Use
  Company Number: US-ABBVIE-13P-163-1161845-00

PATIENT
  Age: 25 Year
  Sex: Female
  Weight: 79.9 kg

DRUGS (2)
  1. LUPRON DEPOT [Suspect]
     Indication: ENDOMETRIOSIS
     Dates: start: 20130917
  2. CELEXA [Suspect]
     Indication: ANXIETY
     Dates: start: 20131016, end: 20131017

REACTIONS (9)
  - Arthralgia [Not Recovered/Not Resolved]
  - Anxiety [Not Recovered/Not Resolved]
  - Myalgia [Not Recovered/Not Resolved]
  - Depression [Not Recovered/Not Resolved]
  - Hot flush [Not Recovered/Not Resolved]
  - Vaginal haemorrhage [Unknown]
  - Malaise [Unknown]
  - Tremor [Recovered/Resolved]
  - Pain [Not Recovered/Not Resolved]
